FAERS Safety Report 5060912-5 (Version None)
Quarter: 2006Q3

REPORT INFORMATION
  Report Type: 
  Country: None (occurrence: None)
  Receive Date: 20060720
  Receipt Date: 20060720
  Transmission Date: 20061208
  Serious: Yes (Hospitalization)
  Sender: FDA-Public Use
  Company Number: None

PATIENT
  Age: 59 Year
  Sex: Male
  Weight: 74.8435 kg

DRUGS (22)
  1. WARFARIN SODIUM [Suspect]
     Indication: ATRIAL FIBRILLATION
     Dosage: 4 MG   DAILY   PO
     Route: 048
     Dates: start: 20040701, end: 20060719
  2. DUONEB [Concomitant]
  3. LANOXIN [Concomitant]
  4. FOLIC ACID [Concomitant]
  5. PYRIDOXINE HCL [Concomitant]
  6. NEPHROCAPS [Concomitant]
  7. THIAMINE [Concomitant]
  8. TESSALON [Concomitant]
  9. SINGULAIR [Concomitant]
  10. MUINEX [Concomitant]
  11. ZANTAC [Concomitant]
  12. CALCIUM CARBONATE [Concomitant]
  13. METOPROLOL [Concomitant]
  14. DIOVAN [Concomitant]
  15. LASIX [Concomitant]
  16. COLACE [Concomitant]
  17. ASPIRIN [Concomitant]
  18. COUMADIN [Concomitant]
  19. NEURONTIN [Concomitant]
  20. LORTAB [Concomitant]
  21. ACETAMINOPHEN [Concomitant]
  22. ROZEREM [Concomitant]

REACTIONS (5)
  - DRUG TOXICITY [None]
  - FAECES DISCOLOURED [None]
  - HAEMATOCRIT DECREASED [None]
  - HAEMOGLOBIN DECREASED [None]
  - MELAENA [None]
